FAERS Safety Report 8302881-8 (Version None)
Quarter: 2012Q2

REPORT INFORMATION
  Report Type: 
  Country: None (occurrence: None)
  Receive Date: 20120420
  Receipt Date: 20120417
  Transmission Date: 20120825
  Serious: Yes (Hospitalization, Other)
  Sender: FDA-Public Use
  Company Number: US-PFIZER INC-2012061550

PATIENT
  Sex: Male
  Weight: 87.98 kg

DRUGS (2)
  1. PRISTIQ [Suspect]
     Dosage: 100 MG, 1X/DAY
     Route: 048
     Dates: start: 20100101
  2. PRISTIQ [Suspect]
     Indication: DEPRESSION
     Dosage: 100 MG, UNK
     Route: 048
     Dates: start: 20090407

REACTIONS (5)
  - LOSS OF CONSCIOUSNESS [None]
  - CARDIAC DISORDER [None]
  - WITHDRAWAL SYNDROME [None]
  - ACTIVITIES OF DAILY LIVING IMPAIRED [None]
  - ANXIETY [None]
